FAERS Safety Report 9578957 (Version 1)
Quarter: 2013Q4

REPORT INFORMATION
  Report Type: Spontaneous
  Country: US (occurrence: US)
  Receive Date: 20131001
  Receipt Date: 20131001
  Transmission Date: 20140711
  Serious: No
  Sender: FDA-Public Use
  Company Number: US-AMGEN-USASP2013015763

PATIENT
  Age: 36 Year
  Sex: Female
  Weight: 77.1 kg

DRUGS (9)
  1. ENBREL [Suspect]
     Indication: PRODUCT USED FOR UNKNOWN INDICATION
     Dosage: 50 MG, QWK
     Route: 058
     Dates: start: 2000
  2. DICLOFENAC [Concomitant]
     Dosage: 100 MG ER, UNK
  3. SPRINTEC [Concomitant]
     Dosage: 28 TAB 28 DAY,
  4. FOLIC ACID [Concomitant]
     Dosage: UNK
  5. TYLENOL                            /00020001/ [Concomitant]
     Dosage: 500 MG, UNK
  6. METHOTREXATE [Concomitant]
     Dosage: 1 G, UNK
  7. HUMIRA [Concomitant]
     Dosage: UNK
  8. REMICADE [Concomitant]
     Dosage: UNK
  9. SIMPONI [Concomitant]
     Dosage: UNK

REACTIONS (4)
  - Drug ineffective [Unknown]
  - Injection site reaction [Unknown]
  - Injection site erythema [Unknown]
  - Injection site swelling [Unknown]
